FAERS Safety Report 16784691 (Version 1)
Quarter: 2019Q3

REPORT INFORMATION
  Report Type: Spontaneous
  Country: US (occurrence: US)
  Receive Date: 20190909
  Receipt Date: 20190909
  Transmission Date: 20191005
  Serious: Yes (Other)
  Sender: FDA-Public Use
  Company Number: PHHY2019US206724

PATIENT

DRUGS (3)
  1. PREDNISONE. [Suspect]
     Active Substance: PREDNISONE
     Indication: FOETAL EXPOSURE DURING PREGNANCY
     Dosage: UNK
     Route: 064
  2. IMMUNOGLOBULIN, INTRAVENOUS [Suspect]
     Active Substance: HUMAN IMMUNOGLOBULIN G
     Indication: NEONATAL ALLOIMMUNE THROMBOCYTOPENIA
     Dosage: 1 G/KG, UNK (FOR NAIT)
     Route: 042
  3. IMMUNOGLOBULIN, INTRAVENOUS [Suspect]
     Active Substance: HUMAN IMMUNOGLOBULIN G
     Indication: FOETAL EXPOSURE DURING PREGNANCY
     Dosage: MATERNAL DOSE: 2 G/KG, Q2W (12-WEEK GESTATION)
     Route: 064

REACTIONS (4)
  - Platelet count decreased [Recovered/Resolved]
  - Vena cava thrombosis [Recovered/Resolved]
  - Neonatal alloimmune thrombocytopenia [Recovered/Resolved]
  - Premature baby [Unknown]
